FAERS Safety Report 5017017-9 (Version None)
Quarter: 2006Q2

REPORT INFORMATION
  Report Type: 
  Country: None (occurrence: None)
  Receive Date: 20060526
  Receipt Date: 20060510
  Transmission Date: 20061013
  Serious: Yes (Hospitalization, Disabling)
  Sender: FDA-Public Use
  Company Number: US200605002451

PATIENT
  Sex: Female
  Weight: 81.6 kg

DRUGS (3)
  1. HUMULIN R [Suspect]
     Indication: DIABETES MELLITUS
     Dosage: 2/D, ; 4U, EACH EVENING,
  2. HUMULIN N [Suspect]
     Indication: DIABETES MELLITUS
     Dosage: 2/D; 5 U, EACH EVENING (SEE IMAGE)
  3. INSULIN [Suspect]
     Indication: DIABETES MELLITUS

REACTIONS (12)
  - ABASIA [None]
  - BLOOD GLUCOSE FLUCTUATION [None]
  - BRAIN OEDEMA [None]
  - CONVULSION [None]
  - LEG AMPUTATION [None]
  - LIMB INJURY [None]
  - LOCALISED INFECTION [None]
  - PHARMACEUTICAL PRODUCT COMPLAINT [None]
  - POOR PERIPHERAL CIRCULATION [None]
  - SHOCK HYPOGLYCAEMIC [None]
  - TREATMENT NONCOMPLIANCE [None]
  - WEIGHT INCREASED [None]
